FAERS Safety Report 7728597-4 (Version None)
Quarter: 2011Q3

REPORT INFORMATION
  Report Type: 
  Country: None (occurrence: None)
  Receive Date: 20110831
  Receipt Date: 20110831
  Transmission Date: 20111222
  Serious: Yes (Death)
  Sender: FDA-Public Use
  Company Number: None

PATIENT
  Sex: Female
  Weight: 65.6 kg

DRUGS (2)
  1. DROPERIDOL [Suspect]
     Indication: RETCHING
     Dosage: 0.625 MG EVERY 6 HOURS PRN IV
     Route: 042
     Dates: start: 20110614
  2. DROPERIDOL [Suspect]
     Indication: NAUSEA
     Dosage: 0.625 MG EVERY 6 HOURS PRN IV
     Route: 042
     Dates: start: 20110614

REACTIONS (3)
  - RESPIRATORY ARREST [None]
  - PULSELESS ELECTRICAL ACTIVITY [None]
  - CARDIAC ARREST [None]
